FAERS Safety Report 4708412-3 (Version None)
Quarter: 2005Q3

REPORT INFORMATION
  Report Type: 
  Country: None (occurrence: None)
  Receive Date: 20050705
  Receipt Date: 20050629
  Transmission Date: 20060218
  Serious: Yes (Hospitalization, Disabling)
  Sender: FDA-Public Use
  Company Number: FRWYE783529JUN05

PATIENT
  Age: 61 Year
  Sex: Female

DRUGS (3)
  1. EFFEXOR [Suspect]
     Dosage: ORAL
     Route: 048
     Dates: end: 20040101
  2. PRAZEPAM [Suspect]
     Dosage: ORAL
     Route: 048
  3. ZYPREXA [Suspect]
     Dosage: ORAL
     Route: 048
     Dates: start: 20030101, end: 20050401

REACTIONS (3)
  - APHASIA [None]
  - CEREBRAL ARTERY OCCLUSION [None]
  - HEMIPLEGIA [None]
